FAERS Safety Report 15981282 (Version 4)
Quarter: 2022Q1

REPORT INFORMATION
  Report Type: Spontaneous
  Country: IT (occurrence: IT)
  Receive Date: 20190219
  Receipt Date: 20220316
  Transmission Date: 20220423
  Serious: No
  Sender: FDA-Public Use
  Company Number: PHHY2019IT033283

PATIENT
  Age: 33 Year
  Sex: Female

DRUGS (6)
  1. ASPIRIN [Suspect]
     Active Substance: ASPIRIN
     Indication: Antiphospholipid syndrome
     Dosage: 100 MG, QD
     Route: 065
  2. HYDROXYCHLOROQUINE SULFATE [Suspect]
     Active Substance: HYDROXYCHLOROQUINE SULFATE
     Indication: Antiphospholipid syndrome
     Dosage: 300 MILLIGRAM DAILY
     Route: 048
  3. FOLIC ACID [Suspect]
     Active Substance: FOLIC ACID
     Indication: Product used for unknown indication
     Dosage: UNK
     Route: 065
  4. UNSPECIFIED INGREDIENT [Suspect]
     Active Substance: UNSPECIFIED INGREDIENT
     Indication: Antiphospholipid syndrome
     Dosage: 100 IU/KG, QD
     Route: 065
  5. ANTITHROMBIN III HUMAN [Suspect]
     Active Substance: ANTITHROMBIN III HUMAN
     Indication: Antiphospholipid syndrome
     Dosage: 1.7 IU/KG, QH, CONTINUOUS INFUSION
     Route: 041
  6. ECULIZUMAB [Suspect]
     Active Substance: ECULIZUMAB
     Indication: Antiphospholipid syndrome
     Dosage: 600 MG FOR 45 MINS
     Route: 041

REACTIONS (3)
  - Maternal exposure during pregnancy [Unknown]
  - Premature delivery [Unknown]
  - Product use in unapproved indication [Unknown]
